FAERS Safety Report 19760475 (Version 1)
Quarter: 2021Q3

REPORT INFORMATION
  Report Type: Other
  Country: IT (occurrence: IT)
  Receive Date: 20210830
  Receipt Date: 20210830
  Transmission Date: 20211014
  Serious: Yes (Other)
  Sender: FDA-Public Use
  Company Number: IT-CELLTRION INC.-2021IT011523

PATIENT

DRUGS (3)
  1. DOCETAXEL HIKMA [Suspect]
     Active Substance: DOCETAXEL
     Indication: BREAST CANCER
     Dosage: 112.1 MG, CYCLIC
     Route: 042
     Dates: start: 20210607, end: 20210607
  2. PERJETA [Suspect]
     Active Substance: PERTUZUMAB
     Indication: BREAST CANCER
     Dosage: 840 MG, CYCLIC; CONCENTRATE AND SOLVENT FOR SOLUTION FOR INFUSION
     Route: 042
     Dates: start: 20210607, end: 20210607
  3. HERZUMA [Suspect]
     Active Substance: TRASTUZUMAB-PKRB
     Indication: BREAST CANCER
     Dosage: 22.51 MG, CYCLIC
     Route: 042
     Dates: start: 20210607, end: 20210607

REACTIONS (2)
  - Underdose [Unknown]
  - Neutropenia [Recovering/Resolving]

NARRATIVE: CASE EVENT DATE: 20210622
